FAERS Safety Report 9455988 (Version 1)
Quarter: 2013Q3

REPORT INFORMATION
  Report Type: Spontaneous
  Country: US (occurrence: US)
  Receive Date: 20130813
  Receipt Date: 20130813
  Transmission Date: 20140515
  Serious: No
  Sender: FDA-Public Use
  Company Number: US-JNJFOC-20130712136

PATIENT
  Sex: Male
  Weight: 77.11 kg

DRUGS (11)
  1. INVEGA [Suspect]
     Indication: SCHIZOAFFECTIVE DISORDER
     Route: 048
  2. RISPERIDONE [Concomitant]
     Indication: SCHIZOAFFECTIVE DISORDER
     Route: 065
  3. GABAPENTIN [Concomitant]
     Indication: SCHIZOAFFECTIVE DISORDER
     Route: 065
  4. PAROXETINE HCL [Concomitant]
     Indication: SCHIZOAFFECTIVE DISORDER
     Route: 065
  5. PROAIR HFA [Concomitant]
     Indication: CHRONIC OBSTRUCTIVE PULMONARY DISEASE
     Route: 065
     Dates: start: 2012
  6. HYDROXYZINE [Concomitant]
     Indication: ANXIETY
     Route: 065
     Dates: start: 2012
  7. BUSPIRONE HCL [Concomitant]
     Indication: ANXIETY
     Route: 065
     Dates: start: 2012
  8. SINGULAIR [Concomitant]
     Indication: CHRONIC OBSTRUCTIVE PULMONARY DISEASE
     Route: 065
     Dates: start: 201204
  9. SPIRIVA [Concomitant]
     Indication: CHRONIC OBSTRUCTIVE PULMONARY DISEASE
     Route: 065
     Dates: start: 2012
  10. SUBOXONE [Concomitant]
     Indication: DEPRESSION
     Dosage: 8-2MG
     Route: 065
     Dates: start: 2012
  11. SUBOXONE [Concomitant]
     Indication: ANXIETY
     Dosage: 8-2MG
     Route: 065
     Dates: start: 2012

REACTIONS (1)
  - Depressed mood [Unknown]
